FAERS Safety Report 4728648-5 (Version None)
Quarter: 2005Q3

REPORT INFORMATION
  Report Type: 
  Country: None (occurrence: None)
  Receive Date: 20050721
  Receipt Date: 20050504
  Transmission Date: 20060218
  Serious: No
  Sender: FDA-Public Use
  Company Number: 2005SP000569

PATIENT
  Age: 24 Year
  Sex: Female

DRUGS (1)
  1. LUNESTA [Suspect]
     Indication: INSOMNIA
     Dosage: 1.5 MG; HS; ORAL
     Route: 048
     Dates: start: 20050418, end: 20050401

REACTIONS (1)
  - NIGHTMARE [None]
